FAERS Safety Report 18333824 (Version 2)
Quarter: 2020Q4

REPORT INFORMATION
  Report Type: Spontaneous
  Country: FR (occurrence: FR)
  Receive Date: 20201001
  Receipt Date: 20201111
  Transmission Date: 20210113
  Serious: Yes (Life-Threatening, Other)
  Sender: FDA-Public Use
  Company Number: FR-PFIZER INC-2020376046

PATIENT
  Age: 5 Year
  Sex: Male
  Weight: 18.9 kg

DRUGS (6)
  1. ENTONOX [Suspect]
     Active Substance: NITROUS OXIDE\OXYGEN
     Indication: ANALGESIC THERAPY
     Dosage: UNK
     Route: 055
  2. DEXAMETHASONE. [Suspect]
     Active Substance: DEXAMETHASONE
     Indication: ACUTE LYMPHOCYTIC LEUKAEMIA
     Dosage: 6 MG/M2, THEN DECREASED DOSE FROM 22AUG2020
     Route: 048
     Dates: start: 20200808, end: 202008
  3. VINCRISTINE SULFATE. [Suspect]
     Active Substance: VINCRISTINE SULFATE
     Indication: ACUTE LYMPHOCYTIC LEUKAEMIA
     Dosage: 1.15 MG
     Route: 041
     Dates: start: 20200806, end: 20200827
  4. METHOTREXATE. [Suspect]
     Active Substance: METHOTREXATE
     Indication: ACUTE LYMPHOCYTIC LEUKAEMIA
     Dosage: 12 MG
     Route: 037
     Dates: start: 20200811, end: 20200821
  5. ONCASPAR [Suspect]
     Active Substance: PEGASPARGASE
     Indication: ACUTE LYMPHOCYTIC LEUKAEMIA
     Dosage: 975 IU
     Route: 041
     Dates: start: 20200810, end: 20200824
  6. DEXAMETHASONE. [Suspect]
     Active Substance: DEXAMETHASONE
     Dosage: UNK, AT DECREASED DOSE
     Route: 048
     Dates: start: 20200822, end: 20200831

REACTIONS (2)
  - Leukoencephalopathy [Not Recovered/Not Resolved]
  - Brain abscess [Not Recovered/Not Resolved]

NARRATIVE: CASE EVENT DATE: 20200909
